FAERS Safety Report 7343135-6 (Version None)
Quarter: 2011Q1

REPORT INFORMATION
  Report Type: 
  Country: None (occurrence: None)
  Receive Date: 20110310
  Receipt Date: 20110307
  Transmission Date: 20110831
  Serious: Yes (Other)
  Sender: FDA-Public Use
  Company Number: US-PFIZER INC-2010182490

PATIENT
  Sex: Female

DRUGS (2)
  1. CHANTIX [Suspect]
     Indication: SMOKING CESSATION THERAPY
     Dosage: VARENICLINE STARTER MONTH PACK AND CONTINUING MONTH PACKS
     Dates: start: 20080101, end: 20081001
  2. HYDROCODONE [Concomitant]
     Indication: PAIN IN EXTREMITY
     Dosage: UNK
     Dates: start: 20070101, end: 20090101

REACTIONS (5)
  - DEPRESSION [None]
  - ANXIETY [None]
  - AGGRESSION [None]
  - NIGHTMARE [None]
  - SUICIDAL IDEATION [None]
